FAERS Safety Report 10080655 (Version 1)
Quarter: 2014Q2

REPORT INFORMATION
  Report Type: Spontaneous
  Country: DE (occurrence: None)
  Receive Date: 20140414
  Receipt Date: 20140414
  Transmission Date: 20141212
  Serious: Yes (Disabling)
  Sender: FDA-Public Use
  Company Number: DE-DEXPHARM-20140153

PATIENT
  Sex: Male

DRUGS (1)
  1. PERIOCHIP [Suspect]
     Indication: PERIODONTITIS
     Route: 004
     Dates: start: 2013

REACTIONS (1)
  - Age-related macular degeneration [None]
